FAERS Safety Report 14820529 (Version 2)
Quarter: 2018Q3

REPORT INFORMATION
  Report Type: Spontaneous
  Country: US (occurrence: US)
  Receive Date: 20180427
  Receipt Date: 20180806
  Transmission Date: 20181010
  Serious: Yes (Other)
  Sender: FDA-Public Use
  Company Number: US-BAYER-2018-078104

PATIENT
  Age: 22 Year
  Sex: Female

DRUGS (1)
  1. MIRENA [Suspect]
     Active Substance: LEVONORGESTREL
     Indication: CONTRACEPTION
     Dosage: 20 MCG/24HR, CONT
     Route: 015
     Dates: start: 20180328

REACTIONS (8)
  - Vaginal discharge [None]
  - Procedural pain [None]
  - Pelvic pain [None]
  - Post procedural discomfort [None]
  - Pelvic infection [None]
  - Procedural haemorrhage [None]
  - Uterine cervical pain [None]
  - Cervicitis [None]
